FAERS Safety Report 20921933 (Version 1)
Quarter: 2022Q2

REPORT INFORMATION
  Report Type: Report from Study
  Country: US (occurrence: US)
  Receive Date: 20220607
  Receipt Date: 20220607
  Transmission Date: 20220720
  Serious: Yes (Hospitalization)
  Sender: FDA-Public Use
  Company Number: US-ABBVIE-22K-163-4420940-00

PATIENT
  Age: 48 Year
  Sex: Male

DRUGS (2)
  1. HUMIRA [Suspect]
     Active Substance: ADALIMUMAB
     Indication: Rheumatoid arthritis
     Route: 058
     Dates: start: 20220406, end: 2022
  2. HUMIRA [Suspect]
     Active Substance: ADALIMUMAB
     Indication: Psoriatic arthropathy

REACTIONS (6)
  - Joint dislocation [Not Recovered/Not Resolved]
  - Sternal fracture [Not Recovered/Not Resolved]
  - Spinal fracture [Not Recovered/Not Resolved]
  - Rib fracture [Not Recovered/Not Resolved]
  - Road traffic accident [Not Recovered/Not Resolved]
  - Fracture pain [Unknown]

NARRATIVE: CASE EVENT DATE: 20220501
